FAERS Safety Report 18347557 (Version 5)
Quarter: 2020Q4

REPORT INFORMATION
  Report Type: Spontaneous
  Country: BR (occurrence: BR)
  Receive Date: 20201006
  Receipt Date: 20201123
  Transmission Date: 20210114
  Serious: Yes (Life-Threatening)
  Sender: FDA-Public Use
  Company Number: NVSC2020BR268253

PATIENT
  Sex: Male

DRUGS (1)
  1. AMLODIPINE BESILATE [Suspect]
     Active Substance: AMLODIPINE BESYLATE
     Indication: PRODUCT USED FOR UNKNOWN INDICATION
     Dosage: UNK UNK, QD
     Route: 065

REACTIONS (7)
  - Product quality issue [Unknown]
  - Drug ineffective [Unknown]
  - Blood pressure increased [Unknown]
  - Headache [Unknown]
  - Blood pressure abnormal [Unknown]
  - Vision blurred [Unknown]
  - Intraocular pressure increased [Unknown]
